FAERS Safety Report 7640908-7 (Version None)
Quarter: 2011Q3

REPORT INFORMATION
  Report Type: 
  Country: None (occurrence: None)
  Receive Date: 20110728
  Receipt Date: 20110728
  Transmission Date: 20111222
  Serious: Yes (Life-Threatening, Hospitalization)
  Sender: FDA-Public Use
  Company Number: None

PATIENT
  Age: 29 Year
  Sex: Female
  Weight: 70.7 kg

DRUGS (1)
  1. MIDOL COMPLETE CAPLETS [Suspect]
     Indication: DYSMENORRHOEA
     Dates: start: 20110708, end: 20110710

REACTIONS (3)
  - DYSPNOEA [None]
  - HYPOKALAEMIA [None]
  - SUPRAVENTRICULAR TACHYCARDIA [None]
